FAERS Safety Report 7765728-4 (Version None)
Quarter: 2011Q3

REPORT INFORMATION
  Report Type: 
  Country: None (occurrence: None)
  Receive Date: 20110921
  Receipt Date: 20110915
  Transmission Date: 20111222
  Serious: Yes (Other)
  Sender: FDA-Public Use
  Company Number: BR-ABBOTT-11P-020-0855994-00

PATIENT
  Age: 54 Year
  Sex: Male

DRUGS (4)
  1. HUMIRA [Suspect]
     Indication: ANAL FISTULA
  2. HUMIRA [Suspect]
     Indication: CROHN'S DISEASE
     Dates: start: 20090101
  3. HUMIRA [Suspect]
     Indication: DIARRHOEA
  4. HUMIRA [Suspect]
     Indication: ANAEMIA

REACTIONS (3)
  - BLOOD CREATININE INCREASED [None]
  - MALAISE [None]
  - RENAL FAILURE ACUTE [None]
